FAERS Safety Report 21754036 (Version 1)
Quarter: 2022Q4

REPORT INFORMATION
  Report Type: Spontaneous
  Country: US (occurrence: None)
  Receive Date: 20221219
  Receipt Date: 20221219
  Transmission Date: 20230113
  Serious: Yes (Hospitalization)
  Sender: FDA-Public Use
  Company Number: None

PATIENT
  Age: 74 Year
  Sex: Female
  Weight: 58.5 kg

DRUGS (3)
  1. BENZONATATE [Suspect]
     Active Substance: BENZONATATE
     Indication: Bronchitis
     Dosage: OTHER QUANTITY : 1 CAPSULE(S);?FREQUENCY : 3 TIMES A DAY;?
     Route: 048
     Dates: start: 20221127, end: 20221203
  2. Doxycycline mono 100 mg [Concomitant]
  3. Albuterol Hfa Inh [Concomitant]

REACTIONS (6)
  - Anosmia [None]
  - Ageusia [None]
  - Olfactory nerve disorder [None]
  - Loss of personal independence in daily activities [None]
  - Anxiety [None]
  - Adjustment disorder with depressed mood [None]

NARRATIVE: CASE EVENT DATE: 20221127
